FAERS Safety Report 24710146 (Version 1)
Quarter: 2024Q4

REPORT INFORMATION
  Report Type: Other
  Country: FR (occurrence: FR)
  Receive Date: 20241209
  Receipt Date: 20241209
  Transmission Date: 20250115
  Serious: Yes (Hospitalization)
  Sender: ZYDUS PHARM
  Company Number: None

PATIENT

DRUGS (10)
  1. ACETAMINOPHEN [Suspect]
     Active Substance: ACETAMINOPHEN
     Indication: Anaesthetic premedication
     Dosage: 1 GRAM
     Route: 048
     Dates: start: 20241023, end: 20241023
  2. PANTOPRAZOLE [Suspect]
     Active Substance: PANTOPRAZOLE
     Indication: Anaesthetic premedication
     Dosage: 20 MILLIGRAM
     Route: 048
     Dates: start: 20241023, end: 20241023
  3. METRONIDAZOLE BENZOATE [Suspect]
     Active Substance: METRONIDAZOLE BENZOATE
     Indication: Induction of anaesthesia
     Dosage: UNK
     Route: 042
     Dates: start: 20241023, end: 20241023
  4. KETAMINE [Suspect]
     Active Substance: KETAMINE
     Indication: Induction of anaesthesia
     Dosage: UNK
     Route: 042
     Dates: start: 20241023, end: 20241023
  5. KETOPROFEN [Suspect]
     Active Substance: KETOPROFEN
     Indication: Anaesthetic premedication
     Dosage: 100 MILLIGRAM
     Route: 048
     Dates: start: 20241023, end: 20241023
  6. LIDOCAINE [Suspect]
     Active Substance: LIDOCAINE
     Indication: Induction of anaesthesia
     Dosage: UNK
     Route: 042
     Dates: start: 20241023, end: 20241023
  7. PROPOFOL [Suspect]
     Active Substance: PROPOFOL
     Indication: Induction of anaesthesia
     Dosage: UNK
     Route: 042
     Dates: start: 20241023, end: 20241023
  8. SUFENTANIL [Suspect]
     Active Substance: SUFENTANIL
     Indication: Induction of anaesthesia
     Dosage: UNK
     Route: 042
     Dates: start: 20241023, end: 20241023
  9. TRACRIUM [Suspect]
     Active Substance: ATRACURIUM BESYLATE
     Indication: Induction of anaesthesia
     Dosage: UNK
     Route: 042
     Dates: start: 20241023, end: 20241023
  10. ALBUTEROL SULFATE [Suspect]
     Active Substance: ALBUTEROL SULFATE
     Indication: Anaesthetic premedication
     Dosage: 2 DOSAGE FORM
     Route: 048
     Dates: start: 20241023, end: 20241023

REACTIONS (3)
  - Procedure aborted [Unknown]
  - Hypotension [Recovered/Resolved]
  - Rash [Recovered/Resolved]

NARRATIVE: CASE EVENT DATE: 20241023
